FAERS Safety Report 7658715-8 (Version None)
Quarter: 2011Q3

REPORT INFORMATION
  Report Type: 
  Country: None (occurrence: None)
  Receive Date: 20110805
  Receipt Date: 20110728
  Transmission Date: 20111222
  Serious: Yes (Other)
  Sender: FDA-Public Use
  Company Number: US-AMGEN-USASP2011035191

PATIENT
  Age: 57 Year
  Sex: Female

DRUGS (1)
  1. ENBREL [Suspect]
     Indication: RHEUMATOID ARTHRITIS
     Dosage: 25 MG, 2 TIMES/WK
     Dates: start: 20110501

REACTIONS (15)
  - AMNESIA [None]
  - NEURALGIA [None]
  - ARTHRALGIA [None]
  - MUSCULOSKELETAL STIFFNESS [None]
  - BLINDNESS [None]
  - ERYTHEMA [None]
  - THERAPEUTIC RESPONSE DECREASED [None]
  - HEAD INJURY [None]
  - MYALGIA [None]
  - CHILLS [None]
  - OEDEMA PERIPHERAL [None]
  - JOINT SWELLING [None]
  - BREAST PAIN [None]
  - FALL [None]
  - TREMOR [None]
